FAERS Safety Report 20867900 (Version 1)
Quarter: 2022Q2

REPORT INFORMATION
  Report Type: Spontaneous
  Country: CA (occurrence: None)
  Receive Date: 20220524
  Receipt Date: 20220524
  Transmission Date: 20220721
  Serious: Yes (Other)
  Sender: FDA-Public Use
  Company Number: CA-ROCHE-3098952

PATIENT
  Age: 73 Year
  Sex: Female

DRUGS (3)
  1. RITUXIMAB [Suspect]
     Active Substance: RITUXIMAB
     Indication: Haemolytic anaemia
     Dosage: DRUG DOSE FIRST ADMINISTERED IS 750.0 MILLIGRAM.?ON AN UNKNOWN DATE, SHE RECEIVED 1000 MG OF INTRAVE
     Route: 042
  2. DIPHENHYDRAMINE HYDROCHLORIDE [Concomitant]
     Active Substance: DIPHENHYDRAMINE HYDROCHLORIDE
     Indication: Product used for unknown indication
     Dosage: DRUG DOSE FIRST ADMINISTERED IS 50.0 MILLIGRAM
     Route: 048
  3. ACETAMINOPHEN [Concomitant]
     Active Substance: ACETAMINOPHEN
     Indication: Product used for unknown indication
     Dosage: DRUG DOSE FIRST ADMINISTERED IS 650.0 MILLIGRAM
     Route: 048

REACTIONS (7)
  - Abdominal distension [Unknown]
  - Bone marrow failure [Unknown]
  - Fatigue [Unknown]
  - Off label use [Unknown]
  - Gastrointestinal motility disorder [Unknown]
  - Insomnia [Unknown]
  - Bladder disorder [Unknown]
